FAERS Safety Report 11687033 (Version 1)
Quarter: 2015Q4

REPORT INFORMATION
  Report Type: Report from Study
  Country: GB (occurrence: GB)
  Receive Date: 20151030
  Receipt Date: 20151030
  Transmission Date: 20160304
  Serious: Yes (Hospitalization)
  Sender: FDA-Public Use
  Company Number: GB-ABBVIE-15K-167-1461912-00

PATIENT
  Age: 40 Year
  Sex: Male
  Weight: 97 kg

DRUGS (7)
  1. HUMIRA [Suspect]
     Active Substance: ADALIMUMAB
     Route: 058
     Dates: start: 20150904
  2. OMEPRAZOLE. [Concomitant]
     Active Substance: OMEPRAZOLE
     Indication: GASTROOESOPHAGEAL REFLUX DISEASE
     Route: 048
     Dates: start: 20140102
  3. HUMIRA [Suspect]
     Active Substance: ADALIMUMAB
     Route: 058
     Dates: start: 201509, end: 20150924
  4. COLESEVELAM [Concomitant]
     Active Substance: COLESEVELAM
     Indication: BILE ACID MALABSORPTION
     Route: 048
     Dates: start: 20150625
  5. HUMIRA [Suspect]
     Active Substance: ADALIMUMAB
     Indication: CROHN^S DISEASE
     Route: 058
     Dates: start: 20150821, end: 20150821
  6. LOPERAMIDE [Concomitant]
     Active Substance: LOPERAMIDE
     Indication: DIARRHOEA
     Route: 048
  7. QUESTRAN [Concomitant]
     Active Substance: CHOLESTYRAMINE
     Indication: BILE ACID MALABSORPTION
     Route: 048
     Dates: start: 20150322

REACTIONS (15)
  - Fall [Recovered/Resolved]
  - Feeling abnormal [Recovered/Resolved]
  - Vision blurred [Unknown]
  - Hypoaesthesia [Unknown]
  - Loss of consciousness [Recovered/Resolved]
  - Mean cell haemoglobin decreased [Unknown]
  - Haematocrit decreased [Unknown]
  - Paraesthesia [Recovered/Resolved]
  - Flushing [Unknown]
  - Mean cell volume decreased [Unknown]
  - Flushing [Unknown]
  - Haemoglobin decreased [Unknown]
  - Eosinophil count increased [Unknown]
  - Headache [Recovered/Resolved]
  - Sinusitis [Recovered/Resolved]

NARRATIVE: CASE EVENT DATE: 201508
